FAERS Safety Report 8713959 (Version 3)
Quarter: 2012Q4

REPORT INFORMATION
  Report Type: 
  Country: US (occurrence: US)
  Receive Date: 20120808
  Receipt Date: 20121011
  Transmission Date: 20130627
  Serious: No
  Sender: FDA-Public Use
  Company Number: US-TEVA-352293USA

PATIENT
  Sex: Female

DRUGS (2)
  1. ENJUVIA [Suspect]
     Dates: start: 2011
  2. LIPITOR [Concomitant]
     Indication: BLOOD CHOLESTEROL INCREASED

REACTIONS (5)
  - Pruritus [Recovered/Resolved]
  - Alopecia [Unknown]
  - Anxiety [Unknown]
  - Product quality issue [None]
  - Tablet physical issue [None]
